FAERS Safety Report 6278684-5 (Version None)
Quarter: 2009Q3

REPORT INFORMATION
  Report Type: 
  Country: None (occurrence: None)
  Receive Date: 20090721
  Receipt Date: 20090708
  Transmission Date: 20100115
  Serious: No
  Sender: FDA-Public Use
  Company Number: 8048831

PATIENT
  Sex: Male

DRUGS (4)
  1. KEPPRA [Suspect]
     Indication: CONVULSION
     Dosage: 10000 MG 2/D PO
     Route: 048
     Dates: start: 20090701, end: 20090705
  2. KEPPRA [Suspect]
     Indication: CONVULSION
     Dosage: 2000 MG 2/D PO
     Route: 048
     Dates: start: 20090706
  3. DEPAKOTE [Concomitant]
  4. DILANTIN [Concomitant]

REACTIONS (1)
  - INCORRECT DOSE ADMINISTERED [None]
